FAERS Safety Report 13182591 (Version 1)
Quarter: 2017Q1

REPORT INFORMATION
  Report Type: Spontaneous
  Country: US (occurrence: US)
  Receive Date: 20170203
  Receipt Date: 20170203
  Transmission Date: 20170428
  Serious: No
  Sender: FDA-Public Use
  Company Number: US-PFIZER INC-2017044785

PATIENT
  Age: 57 Year
  Sex: Female
  Weight: 109 kg

DRUGS (2)
  1. LYRICA [Suspect]
     Active Substance: PREGABALIN
     Dosage: 150 MG, 1X/DAY
  2. LYRICA [Suspect]
     Active Substance: PREGABALIN
     Indication: DIABETIC NEUROPATHY
     Dosage: 150 MG, 2X/DAY (ONE IN MORNING AND NIGHT)

REACTIONS (4)
  - Pain [Not Recovered/Not Resolved]
  - Dysphagia [Unknown]
  - Gait disturbance [Not Recovered/Not Resolved]
  - Intentional product misuse [Unknown]
